FAERS Safety Report 20211179 (Version 1)
Quarter: 2021Q4

REPORT INFORMATION
  Report Type: Spontaneous
  Country: GB (occurrence: GB)
  Receive Date: 20211221
  Receipt Date: 20211221
  Transmission Date: 20220304
  Serious: Yes (Hospitalization, Congenital Anomaly, Other)
  Sender: FDA-Public Use
  Company Number: GB-ABBVIE-21K-167-4203184-00

PATIENT
  Sex: Female

DRUGS (1)
  1. EPILIM [Suspect]
     Active Substance: VALPROATE SODIUM
     Indication: Maternal exposure timing unspecified
     Route: 064

REACTIONS (11)
  - Unevaluable event [Unknown]
  - Asthma [Unknown]
  - Otitis media chronic [Unknown]
  - Raynaud^s phenomenon [Unknown]
  - Low birth weight baby [Unknown]
  - Body temperature decreased [Unknown]
  - Myopia [Unknown]
  - Respiratory disorder [Unknown]
  - Dysmenorrhoea [Unknown]
  - Premature baby [Unknown]
  - Foetal exposure during pregnancy [Unknown]

NARRATIVE: CASE EVENT DATE: 20060515
